FAERS Safety Report 23139166 (Version 1)
Quarter: 2023Q4

REPORT INFORMATION
  Report Type: Spontaneous
  Country: US (occurrence: None)
  Receive Date: 20231101
  Receipt Date: 20231101
  Transmission Date: 20240110
  Serious: Yes (Death, Life-Threatening, Hospitalization, Disabling, Other)
  Sender: FDA-Public Use
  Company Number: None

PATIENT
  Age: 76 Year
  Sex: Male
  Weight: 94.5 kg

DRUGS (2)
  1. KEYTRUDA [Suspect]
     Active Substance: PEMBROLIZUMAB
     Indication: Non-small cell lung cancer
     Dosage: OTHER QUANTITY : 1 INJECTION(S);?OTHER FREQUENCY : EVERY THREE WEEKS;?
     Route: 042
     Dates: end: 20211101
  2. MILRINONE [Suspect]
     Active Substance: MILRINONE

REACTIONS (5)
  - Cardiomegaly [None]
  - Renal failure [None]
  - Fall [None]
  - Stevens-Johnson syndrome [None]
  - Infusion related reaction [None]

NARRATIVE: CASE EVENT DATE: 20210804
